FAERS Safety Report 15150741 (Version 1)
Quarter: 2018Q3

REPORT INFORMATION
  Report Type: Spontaneous
  Country: US (occurrence: US)
  Receive Date: 20180716
  Receipt Date: 20180716
  Transmission Date: 20181010
  Serious: No
  Sender: FDA-Public Use
  Company Number: US-TARO-2017TAR00955

PATIENT
  Sex: Female
  Weight: 79.37 kg

DRUGS (6)
  1. CLOTRIMAZOLE/BETAMETHASONE DIPROPIONATE CREAM USP 1%/0.05% [Suspect]
     Active Substance: BETAMETHASONE DIPROPIONATE\CLOTRIMAZOLE
     Indication: RASH
  2. UNKNOWN MEDICATION FOR THYROID [Concomitant]
  3. UNKNOWN MEDICATION FOR BLOOD PRESSURE [Concomitant]
  4. UNKNOWN BLOOD THINNER [Concomitant]
     Active Substance: UNSPECIFIED INGREDIENT
  5. CLOTRIMAZOLE/BETAMETHASONE DIPROPIONATE CREAM USP 1%/0.05% [Suspect]
     Active Substance: BETAMETHASONE DIPROPIONATE\CLOTRIMAZOLE
     Indication: FUNGAL INFECTION
     Dosage: ^THIN LAYER,^ 1X/DAY
     Route: 061
     Dates: start: 201710, end: 201711
  6. UNKNOWN MEDICATION FOR CHOLESTEROL [Concomitant]

REACTIONS (3)
  - Dermatitis [Recovering/Resolving]
  - Drug ineffective [Recovered/Resolved]
  - Discomfort [Recovering/Resolving]

NARRATIVE: CASE EVENT DATE: 2017
